FAERS Safety Report 24588106 (Version 3)
Quarter: 2024Q4

REPORT INFORMATION
  Report Type: Spontaneous
  Country: US (occurrence: US)
  Receive Date: 20241107
  Receipt Date: 20241230
  Transmission Date: 20250115
  Serious: No
  Sender: JOHNSON AND JOHNSON
  Company Number: US-JNJFOC-20241079621

PATIENT

DRUGS (3)
  1. TREMFYA [Suspect]
     Active Substance: GUSELKUMAB
     Indication: Psoriasis
     Dosage: WEEK 0 THEN WEEK 4 THEN EVERY 8 WEEKS??FREQUENCY:WEEK 0 THEN WEEK 4 THEN EVERY 8 WEEKS
     Route: 065
  2. TREMFYA [Suspect]
     Active Substance: GUSELKUMAB
     Indication: Psoriasis
  3. TREMFYA [Suspect]
     Active Substance: GUSELKUMAB
     Indication: Psoriatic arthropathy

REACTIONS (2)
  - Device leakage [Unknown]
  - Accidental exposure to product [Unknown]

NARRATIVE: CASE EVENT DATE: 20241001
